FAERS Safety Report 12354639 (Version 2)
Quarter: 2016Q4

REPORT INFORMATION
  Report Type: Spontaneous
  Country: US (occurrence: US)
  Receive Date: 20160511
  Receipt Date: 20161214
  Transmission Date: 20170207
  Serious: No
  Sender: FDA-Public Use
  Company Number: US-GLAXOSMITHKLINE-CHPA2016US002806

PATIENT

DRUGS (1)
  1. VOLTAREN [Suspect]
     Active Substance: DICLOFENAC SODIUM
     Indication: ARTHRITIS
     Dosage: UNK
     Route: 061

REACTIONS (4)
  - Scratch [Unknown]
  - Product container issue [Unknown]
  - Product quality issue [Unknown]
  - Wound [Unknown]

NARRATIVE: CASE EVENT DATE: 20160229
